FAERS Safety Report 4776518-9 (Version None)
Quarter: 2005Q3

REPORT INFORMATION
  Report Type: 
  Country: None (occurrence: None)
  Receive Date: 20050915
  Receipt Date: 20050907
  Transmission Date: 20060218
  Serious: Yes (Hospitalization, Other)
  Sender: FDA-Public Use
  Company Number: 2005124312

PATIENT
  Age: 64 Year
  Sex: Female

DRUGS (6)
  1. PREDNISONE [Suspect]
     Indication: POLYMYALGIA RHEUMATICA
     Dosage: 10 MG (5 MG, 2 IN 1 D), ORAL
     Route: 048
     Dates: start: 20040401
  2. AMILOFERM (AMILORIDE HYDROCHLORIDE, HYDROCHLOROTHIAZIDE) [Suspect]
     Indication: HYPERTENSION
     Dosage: ORAL
     Route: 048
     Dates: start: 20040830
  3. ALVEDON (PARACETAMOL) [Concomitant]
  4. ATENOLOL [Concomitant]
  5. IDEOS (CALCIUM CARBONATE, COLECALCIFEROL) [Concomitant]
  6. EVISTA [Concomitant]

REACTIONS (1)
  - DIABETES MELLITUS NON-INSULIN-DEPENDENT [None]
